FAERS Safety Report 12109105 (Version 3)
Quarter: 2017Q3

REPORT INFORMATION
  Report Type: Report from Study
  Country: JP (occurrence: JP)
  Receive Date: 20160224
  Receipt Date: 20170717
  Transmission Date: 20171127
  Serious: Yes (Death, Hospitalization)
  Sender: FDA-Public Use
  Company Number: PHJP2016JP003568

PATIENT
  Age: 68 Year
  Sex: Female

DRUGS (9)
  1. FARYDAK [Suspect]
     Active Substance: PANOBINOSTAT
     Dosage: 15 MG, QD (6 ADMINISTRATIONS PER CYCLE )
     Route: 048
     Dates: start: 20160223, end: 20160627
  2. OXYCONTIN [Suspect]
     Active Substance: OXYCODONE HYDROCHLORIDE
     Indication: PAIN
     Dosage: UNK
     Route: 048
  3. FENTANYL. [Concomitant]
     Active Substance: FENTANYL
     Indication: PAIN
     Dosage: UNK
     Route: 062
  4. FARYDAK [Suspect]
     Active Substance: PANOBINOSTAT
     Dosage: 15 MG, QD (3 ADMINISTRATIONS PER CYCLE )
     Route: 048
     Dates: start: 20160628, end: 20160706
  5. BORTEZOMIB [Concomitant]
     Active Substance: BORTEZOMIB
     Indication: PLASMA CELL MYELOMA
     Dosage: 1.3 MG/M2, QW
     Route: 058
     Dates: start: 20151028, end: 20151117
  6. ACICLOVIR [Concomitant]
     Active Substance: ACYCLOVIR
     Indication: PRODUCT USED FOR UNKNOWN INDICATION
     Dosage: 200 MG, UNK
     Route: 065
  7. BORTEZOMIB [Concomitant]
     Active Substance: BORTEZOMIB
     Dosage: 1 MG/M2, QW
     Route: 058
     Dates: start: 20160223, end: 20160706
  8. DEXAMETHASONE. [Concomitant]
     Active Substance: DEXAMETHASONE
     Indication: PLASMA CELL MYELOMA
     Dosage: 20 MG, ,DAY1,2,8
     Route: 065
     Dates: start: 20151028, end: 20160706
  9. FARYDAK [Suspect]
     Active Substance: PANOBINOSTAT
     Indication: PLASMA CELL MYELOMA
     Dosage: 20 MG, QD (2 ADMINISTRATIONS PER CYCLE)
     Route: 048
     Dates: start: 20151028, end: 20151117

REACTIONS (6)
  - Plasma cell myeloma [Fatal]
  - Drug interaction [Unknown]
  - Malignant neoplasm progression [Fatal]
  - Constipation [Recovering/Resolving]
  - Decreased appetite [Unknown]
  - Nausea [Unknown]

NARRATIVE: CASE EVENT DATE: 20151101
